FAERS Safety Report 5831023-3 (Version None)
Quarter: 2008Q3

REPORT INFORMATION
  Report Type: 
  Country: None (occurrence: None)
  Receive Date: 20080801
  Receipt Date: 20080311
  Transmission Date: 20090109
  Serious: Yes (Hospitalization)
  Sender: FDA-Public Use
  Company Number: US-BRISTOL-MYERS SQUIBB COMPANY-14110985

PATIENT
  Sex: Female

DRUGS (2)
  1. ORENCIA [Suspect]
  2. COUMADIN [Suspect]

REACTIONS (2)
  - EPISTAXIS [None]
  - GASTROINTESTINAL HAEMORRHAGE [None]
